FAERS Safety Report 19306260 (Version 2)
Quarter: 2021Q2

REPORT INFORMATION
  Report Type: Report from Study
  Country: AR (occurrence: AR)
  Receive Date: 20210526
  Receipt Date: 20210610
  Transmission Date: 20210717
  Serious: Yes (Other)
  Sender: FDA-Public Use
  Company Number: NVSC2021AR111086

PATIENT
  Sex: Male
  Weight: 80 kg

DRUGS (3)
  1. ASPIRINETAS [Concomitant]
     Active Substance: ASPIRIN
     Indication: CARDIOVASCULAR EVENT PROPHYLAXIS
     Dosage: UNK, STARTED FROM 30 YEARS
     Route: 065
  2. CARVEDILOL. [Concomitant]
     Active Substance: CARVEDILOL
     Indication: PRODUCT USED FOR UNKNOWN INDICATION
     Dosage: UNK, STARTED MORE THAN 30 YEARS
     Route: 065
  3. EXFORGE [Suspect]
     Active Substance: AMLODIPINE BESYLATE\VALSARTAN
     Indication: HYPERTENSION
     Dosage: 1 DF, QD
     Route: 065

REACTIONS (14)
  - Drug dependence [Unknown]
  - Visual impairment [Unknown]
  - Dysstasia [Unknown]
  - Mobility decreased [Unknown]
  - Cataract [Recovered/Resolved]
  - Stress [Unknown]
  - Gait disturbance [Unknown]
  - Hypoaesthesia [Unknown]
  - Diabetes mellitus [Unknown]
  - Dizziness postural [Unknown]
  - Blood pressure increased [Unknown]
  - Memory impairment [Unknown]
  - Weight decreased [Unknown]
  - Pain in extremity [Unknown]
